FAERS Safety Report 9610936 (Version 2)
Quarter: 2013Q4

REPORT INFORMATION
  Report Type: Report from Study
  Country: KE (occurrence: KE)
  Receive Date: 20131009
  Receipt Date: 20131023
  Transmission Date: 20140711
  Serious: Yes (Death)
  Sender: FDA-Public Use
  Company Number: KE-PFIZER INC-2013286072

PATIENT
  Age: 24 Year
  Sex: Female

DRUGS (10)
  1. RIFAMPICIN [Suspect]
     Indication: TUBERCULOSIS
     Dosage: 450 MG, DAILY
  2. WARFARIN [Interacting]
     Indication: RHEUMATIC HEART DISEASE
     Dosage: 5 MG, DAILY
  3. WARFARIN [Interacting]
     Indication: ATRIAL THROMBOSIS
  4. CARVEDILOL [Concomitant]
     Dosage: UNK
  5. DIGOXIN [Concomitant]
     Dosage: UNK
  6. ENALAPRIL [Concomitant]
     Dosage: UNK
  7. ETHAMBUTOL [Concomitant]
     Dosage: UNK
  8. FUROSEMIDE [Concomitant]
     Dosage: UNK
  9. ISONIAZID [Concomitant]
     Dosage: UNK
  10. PYRAZINAMIDE [Concomitant]
     Dosage: UNK

REACTIONS (3)
  - Cardiac failure congestive [Fatal]
  - Drug interaction [Fatal]
  - International normalised ratio decreased [Unknown]
